FAERS Safety Report 4697076-3 (Version None)
Quarter: 2005Q2

REPORT INFORMATION
  Report Type: 
  Country: None (occurrence: None)
  Receive Date: 20050622
  Receipt Date: 20050211
  Transmission Date: 20051028
  Serious: Yes (Hospitalization)
  Sender: FDA-Public Use
  Company Number: DE-ROCHE-395295

PATIENT
  Age: 49 Year
  Sex: Female
  Weight: 65 kg

DRUGS (2)
  1. PEGASYS [Suspect]
     Indication: HEPATITIS C
     Dosage: DOSING REGIMEN REPORTED AS: 180 MCG
     Route: 058
     Dates: start: 20040315, end: 20040815
  2. COPEGUS [Suspect]
     Indication: HEPATITIS C
     Route: 048
     Dates: start: 20040315, end: 20040815

REACTIONS (3)
  - ABSCESS [None]
  - ASEPTIC NECROSIS BONE [None]
  - LEUKOPENIA [None]
